FAERS Safety Report 25674913 (Version 1)
Quarter: 2025Q3

REPORT INFORMATION
  Report Type: Spontaneous
  Country: CN (occurrence: CN)
  Receive Date: 20250813
  Receipt Date: 20250813
  Transmission Date: 20251021
  Serious: Yes (Hospitalization, Other)
  Sender: ANXIN PHARMA
  Company Number: CN-Shandong Anxin Pharmaceutical Co.  Ltd.-QLT-000035-2025

PATIENT
  Age: 94 Year
  Sex: Male
  Weight: 63 kg

DRUGS (4)
  1. PIPERACILLIN AND TAZOBACTAM [Suspect]
     Active Substance: PIPERACILLIN SODIUM\TAZOBACTAM SODIUM
     Indication: Pneumonia
     Route: 041
     Dates: start: 20250716, end: 20250720
  2. CEFOPERAZONE SODIUM\SULBACTAM SODIUM [Suspect]
     Active Substance: CEFOPERAZONE SODIUM\SULBACTAM SODIUM
     Indication: Pneumonia
     Route: 041
     Dates: start: 20250628, end: 20250716
  3. SODIUM CHLORIDE [Concomitant]
     Active Substance: SODIUM CHLORIDE
     Dosage: 50 ML PER EVERY 8 HOURS (THRICE DAILY)
     Route: 041
     Dates: start: 20250628, end: 20250716
  4. SODIUM CHLORIDE [Concomitant]
     Active Substance: SODIUM CHLORIDE
     Dosage: 50 ML PER DAY
     Route: 041
     Dates: start: 20250716, end: 20250720

REACTIONS (5)
  - Loss of consciousness [Unknown]
  - Muscle twitching [Recovered/Resolved]
  - Trismus [Unknown]
  - Muscle rigidity [Unknown]
  - Epilepsy [Unknown]

NARRATIVE: CASE EVENT DATE: 20250717
